FAERS Safety Report 23322045 (Version 1)
Quarter: 2023Q4

REPORT INFORMATION
  Report Type: Report from Study
  Country: US (occurrence: US)
  Receive Date: 20231220
  Receipt Date: 20231220
  Transmission Date: 20240109
  Serious: Yes (Hospitalization)
  Sender: FDA-Public Use
  Company Number: US-AMGEN-USASL2023223210

PATIENT
  Age: 74 Year
  Sex: Female

DRUGS (2)
  1. LUMAKRAS [Suspect]
     Active Substance: SOTORASIB
     Indication: Lung neoplasm malignant
     Dosage: 3 DOSAGE FORM (3 TABLETS DAILY), QD
     Route: 065
     Dates: start: 2023, end: 2023
  2. LUMAKRAS [Suspect]
     Active Substance: SOTORASIB
     Dosage: UNK
     Route: 065
     Dates: start: 202306, end: 202310

REACTIONS (2)
  - Intestinal obstruction [Unknown]
  - Constipation [Unknown]
